FAERS Safety Report 7248398-3 (Version None)
Quarter: 2011Q1

REPORT INFORMATION
  Report Type: 
  Country: None (occurrence: None)
  Receive Date: 20110127
  Receipt Date: 20110117
  Transmission Date: 20110831
  Serious: Yes (Death, Life-Threatening, Hospitalization)
  Sender: FDA-Public Use
  Company Number: US-ELI_LILLY_AND_COMPANY-US201101004143

PATIENT
  Sex: Female
  Weight: 81.633 kg

DRUGS (7)
  1. COREG [Concomitant]
     Dosage: 6.25 MG, 2/D
  2. PHOSLO [Concomitant]
     Dosage: 667 MG, 3/D
  3. AMBIEN [Concomitant]
     Dosage: 5 MG, DAILY (1/D)
  4. EFFIENT [Suspect]
     Dosage: 10 MG, DAILY (1/D)
     Route: 048
     Dates: start: 20101125
  5. ASPIRIN [Concomitant]
     Dosage: 325 MG, DAILY (1/D)
  6. ISOSORBIDE MONONITRATE [Concomitant]
     Dosage: 30 MG, DAILY (1/D)
     Route: 048
  7. PRAVASTATIN [Concomitant]
     Dosage: 40 MG, DAILY (1/D)

REACTIONS (6)
  - FALL [None]
  - HEAD INJURY [None]
  - BRAIN HERNIATION [None]
  - SUBDURAL HAEMATOMA [None]
  - HAEMORRHAGE INTRACRANIAL [None]
  - PULMONARY OEDEMA [None]
